FAERS Safety Report 10160361 (Version 1)
Quarter: 2014Q2

REPORT INFORMATION
  Report Type: Spontaneous
  Country: FR (occurrence: FR)
  Receive Date: 20140508
  Receipt Date: 20140508
  Transmission Date: 20141212
  Serious: Yes (Hospitalization)
  Sender: FDA-Public Use
  Company Number: FR-GLAXOSMITHKLINE-B0989540A

PATIENT
  Age: 86 Year
  Sex: Female

DRUGS (8)
  1. ARIXTRA [Suspect]
     Indication: THROMBOSIS PROPHYLAXIS
     Route: 058
     Dates: start: 20140117, end: 20140127
  2. TAVANIC [Suspect]
     Indication: BRONCHOPNEUMOPATHY
     Dosage: 2TAB PER DAY
     Route: 048
     Dates: start: 20140124, end: 20140125
  3. ROVAMYCINE [Suspect]
     Indication: BRONCHOPNEUMOPATHY
     Dosage: 3UNIT PER DAY
     Route: 042
     Dates: start: 20140126, end: 20140127
  4. VOLTARENE [Concomitant]
     Route: 065
  5. LASILIX [Concomitant]
     Route: 065
  6. DUROGESIC [Concomitant]
     Route: 065
  7. MOVICOL [Concomitant]
     Route: 065
  8. COTAREG [Concomitant]
     Route: 065

REACTIONS (7)
  - Rash erythematous [Recovered/Resolved]
  - Prurigo [Unknown]
  - Pyrexia [Recovered/Resolved]
  - Purpura [Unknown]
  - Renal failure acute [Recovered/Resolved]
  - Eosinophilia [Unknown]
  - Eczema [Unknown]
